FAERS Safety Report 6136460-8 (Version None)
Quarter: 2009Q1

REPORT INFORMATION
  Report Type: 
  Country: None (occurrence: None)
  Receive Date: 20090330
  Receipt Date: 20090319
  Transmission Date: 20090719
  Serious: Yes (Life-Threatening, Hospitalization, Other)
  Sender: FDA-Public Use
  Company Number: DE-WYE-H08666509

PATIENT
  Age: 74 Year
  Sex: Female

DRUGS (4)
  1. PANTOZOL [Suspect]
     Route: 042
     Dates: start: 20090108, end: 20090109
  2. ROCEPHIN [Suspect]
     Indication: CHOLECYSTITIS
     Route: 042
     Dates: start: 20090112, end: 20090115
  3. ROCEPHIN [Suspect]
     Route: 042
     Dates: start: 20090116, end: 20090116
  4. PANTOZOL [Suspect]
     Route: 048
     Dates: start: 20090110, end: 20090115

REACTIONS (1)
  - HEPATITIS ACUTE [None]
